FAERS Safety Report 4776386-5 (Version None)
Quarter: 2005Q3

REPORT INFORMATION
  Report Type: 
  Country: None (occurrence: None)
  Receive Date: 20050921
  Receipt Date: 20050909
  Transmission Date: 20060218
  Serious: Yes (Other)
  Sender: FDA-Public Use
  Company Number: 217094

PATIENT
  Age: 61 Year
  Sex: Male
  Weight: 86 kg

DRUGS (5)
  1. AVASTIN [Suspect]
     Indication: COLON CANCER
     Dosage: 7.5  MG/KG, Q3W, INTRAVENOUS
     Route: 042
     Dates: start: 20050620
  2. CAPECITABINE (CAPECITABINE) [Suspect]
     Indication: COLON CANCER
     Dosage: 1000 MG/M2, BID, ORAL
     Route: 048
     Dates: start: 20050620
  3. OXALIPLATIN (OXALIPLATIN) [Suspect]
     Indication: COLON CANCER
     Dosage: 130 MG/M2, Q3W, INTRAVENOUS
     Route: 042
     Dates: start: 20050620
  4. BISOPROLOL FUMARATE [Concomitant]
  5. PANTOLOC (PANTOPRAZOLE) [Concomitant]

REACTIONS (3)
  - CONDITION AGGRAVATED [None]
  - HYPERCHOLESTEROLAEMIA [None]
  - HYPERTRIGLYCERIDAEMIA [None]
